FAERS Safety Report 23437275 (Version 3)
Quarter: 2024Q1

REPORT INFORMATION
  Report Type: Spontaneous
  Country: US (occurrence: US)
  Receive Date: 20240124
  Receipt Date: 20240201
  Transmission Date: 20240410
  Serious: Yes (Hospitalization, Other)
  Sender: FDA-Public Use
  Company Number: US-PFIZER INC-PV202400008775

PATIENT
  Age: 71 Year
  Sex: Male

DRUGS (2)
  1. HEPARIN SODIUM [Suspect]
     Active Substance: HEPARIN SODIUM
     Indication: Myocardial infarction
     Dosage: 100 MG, SINGLE (SOON AFTER ADMISSION)
     Route: 042
  2. HEPARIN SODIUM [Suspect]
     Active Substance: HEPARIN SODIUM
     Indication: Thrombophlebitis
     Dosage: 50 MG (2 WEEKS LATER)
     Route: 042

REACTIONS (1)
  - Anaphylactic reaction [Recovered/Resolved]
